FAERS Safety Report 13091959 (Version 5)
Quarter: 2019Q2

REPORT INFORMATION
  Report Type: Report from Study
  Country: BR (occurrence: BR)
  Receive Date: 20170106
  Receipt Date: 20190603
  Transmission Date: 20190711
  Serious: Yes (Hospitalization, Other)
  Sender: FDA-Public Use
  Company Number: PHHY2017BR001141

PATIENT
  Sex: Female
  Weight: 50 kg

DRUGS (2)
  1. OSCAL [Concomitant]
     Active Substance: CALCIUM CARBONATE
     Indication: MINERAL SUPPLEMENTATION
     Dosage: 1 DF, QD
     Route: 048
  2. ACLASTA [Suspect]
     Active Substance: ZOLEDRONIC ACID
     Indication: OSTEOPOROSIS
     Dosage: 1 DF (5 MG/100 ML), Q12MO
     Route: 042
     Dates: start: 2017

REACTIONS (28)
  - Gastrointestinal disorder [Not Recovered/Not Resolved]
  - Renal disorder [Recovering/Resolving]
  - Memory impairment [Unknown]
  - Dyschezia [Not Recovered/Not Resolved]
  - Gait disturbance [Unknown]
  - Mobility decreased [Unknown]
  - Speech disorder [Not Recovered/Not Resolved]
  - Weight decreased [Not Recovered/Not Resolved]
  - Dysuria [Recovering/Resolving]
  - Nervousness [Unknown]
  - Fatigue [Unknown]
  - Cough [Recovering/Resolving]
  - Intestinal obstruction [Unknown]
  - Lacrimation increased [Recovering/Resolving]
  - Blood pressure abnormal [Unknown]
  - Asthenia [Unknown]
  - Body height decreased [Unknown]
  - Influenza [Not Recovered/Not Resolved]
  - Vomiting [Recovered/Resolved]
  - Nasopharyngitis [Unknown]
  - Hypoacusis [Unknown]
  - Pyrexia [Unknown]
  - Malaise [Unknown]
  - Nausea [Recovered/Resolved]
  - Insomnia [Unknown]
  - Feeling abnormal [Unknown]
  - Drug ineffective [Unknown]
  - Arthralgia [Recovering/Resolving]
